FAERS Safety Report 8169902-7 (Version None)
Quarter: 2012Q1

REPORT INFORMATION
  Report Type: 
  Country: None (occurrence: None)
  Receive Date: 20120228
  Receipt Date: 20120220
  Transmission Date: 20120608
  Serious: Yes (Hospitalization)
  Sender: FDA-Public Use
  Company Number: FR-PFIZER INC-2012049414

PATIENT
  Age: 82 Year
  Sex: Male

DRUGS (8)
  1. BISOPROLOL FUMARATE [Concomitant]
  2. CORDARONE [Suspect]
     Dosage: 200 MG, UNK
     Route: 048
     Dates: end: 20110831
  3. RAMIPRIL [Suspect]
     Dosage: 2.5 MG, 1X/DAY
     Route: 048
     Dates: end: 20110831
  4. ATARAX [Concomitant]
  5. CREON [Concomitant]
  6. NOVOMIX [Concomitant]
  7. LORAZEPAM [Concomitant]
  8. CLOBETASOL PROPIONATE [Concomitant]
     Dosage: UNK
     Dates: end: 20110608

REACTIONS (1)
  - PEMPHIGOID [None]
